FAERS Safety Report 9871242 (Version 3)
Quarter: 2014Q1

REPORT INFORMATION
  Report Type: Spontaneous
  Country: US (occurrence: US)
  Receive Date: 20140205
  Receipt Date: 20140312
  Transmission Date: 20141002
  Serious: Yes (Hospitalization)
  Sender: FDA-Public Use
  Company Number: US-GLAXOSMITHKLINE-A1059084A

PATIENT
  Age: 29 Year
  Sex: Female

DRUGS (3)
  1. FLOLAN [Suspect]
     Indication: PULMONARY ARTERIAL HYPERTENSION
     Dosage: 5.5NGKM CONTINUOUS
     Route: 042
     Dates: start: 20140114
  2. REVATIO [Concomitant]
  3. LETAIRIS [Concomitant]

REACTIONS (9)
  - Investigation [Unknown]
  - Pain in jaw [Unknown]
  - Pain in extremity [Unknown]
  - Nausea [Unknown]
  - Vomiting [Unknown]
  - Headache [Unknown]
  - Chest pain [Unknown]
  - Catheter site rash [Not Recovered/Not Resolved]
  - Rash [Not Recovered/Not Resolved]
